APPROVED DRUG PRODUCT: CEFPROZIL
Active Ingredient: CEFPROZIL
Strength: 500MG
Dosage Form/Route: TABLET;ORAL
Application: A065276 | Product #002 | TE Code: AB
Applicant: LUPIN LTD
Approved: Dec 8, 2005 | RLD: No | RS: Yes | Type: RX